FAERS Safety Report 4328658-6 (Version None)
Quarter: 2004Q1

REPORT INFORMATION
  Report Type: 
  Country: None (occurrence: None)
  Receive Date: 20040322
  Receipt Date: 20040310
  Transmission Date: 20041129
  Serious: Yes (Hospitalization)
  Sender: FDA-Public Use
  Company Number: 200410061BBE

PATIENT
  Age: 48 Year
  Sex: Male

DRUGS (1)
  1. PLASBUMIN-25 [Suspect]
     Indication: HYPOALBUMINAEMIA
     Dosage: 25 G, TOTAL DAILY, INTRAVENOUS BOLUS
     Route: 040

REACTIONS (2)
  - CARDIAC FAILURE [None]
  - GENERAL PHYSICAL HEALTH DETERIORATION [None]
